FAERS Safety Report 9415419 (Version 1)
Quarter: 2013Q3

REPORT INFORMATION
  Report Type: Spontaneous
  Country: US (occurrence: US)
  Receive Date: 20130723
  Receipt Date: 20130723
  Transmission Date: 20140515
  Serious: No
  Sender: FDA-Public Use
  Company Number: US-MUTUAL PHARMACEUTICAL COMPANY, INC.-IMPR20120002

PATIENT
  Sex: Female

DRUGS (1)
  1. IMIPRAMINE HYDROCHLORIDE [Suspect]
     Indication: BLADDER DYSFUNCTION
     Route: 048
     Dates: start: 2009

REACTIONS (1)
  - Intraocular pressure increased [Unknown]
